FAERS Safety Report 9474453 (Version 1)
Quarter: 2013Q3

REPORT INFORMATION
  Report Type: Spontaneous
  Country: US (occurrence: US)
  Receive Date: 20130823
  Receipt Date: 20130823
  Transmission Date: 20140515
  Serious: Yes (Other)
  Sender: FDA-Public Use
  Company Number: US-PFIZER INC-2013242286

PATIENT
  Sex: Female

DRUGS (1)
  1. LIPITOR [Suspect]
     Dosage: UNK
     Route: 048
     Dates: start: 200803

REACTIONS (15)
  - Type 2 diabetes mellitus [Unknown]
  - Rash [Unknown]
  - Syncope [Unknown]
  - Neuralgia [Unknown]
  - Myalgia [Unknown]
  - Muscular weakness [Unknown]
  - Paraesthesia [Unknown]
  - Dry mouth [Unknown]
  - Breast enlargement [Unknown]
  - Lacrimation increased [Unknown]
  - Muscle twitching [Unknown]
  - Amnesia [Unknown]
  - Psychotic disorder [Unknown]
  - Hallucination [Unknown]
  - Pruritus [Unknown]
